FAERS Safety Report 18195372 (Version 1)
Quarter: 2020Q3

REPORT INFORMATION
  Report Type: Spontaneous
  Country: CA (occurrence: CA)
  Receive Date: 20200825
  Receipt Date: 20200825
  Transmission Date: 20201103
  Serious: Yes (Other)
  Sender: FDA-Public Use
  Company Number: CA-ASTRAZENECA-2020SF04350

PATIENT
  Age: 55 Year
  Sex: Female

DRUGS (3)
  1. SAPHRIS [Suspect]
     Active Substance: ASENAPINE MALEATE
     Indication: SCHIZOPHRENIA
     Dosage: 10.0MG UNKNOWN
     Route: 065
  2. ABILIFY [Suspect]
     Active Substance: ARIPIPRAZOLE
     Indication: SCHIZOPHRENIA
     Dosage: 800.0MG UNKNOWN
     Route: 065
  3. QUETIAPINE. [Suspect]
     Active Substance: QUETIAPINE
     Indication: SCHIZOPHRENIA
     Dosage: 10.0MG UNKNOWN
     Route: 048

REACTIONS (7)
  - Weight increased [Unknown]
  - Schizophrenia [Unknown]
  - Adverse event [Unknown]
  - Sedation [Unknown]
  - Dystonia [Unknown]
  - Extrapyramidal disorder [Unknown]
  - Therapeutic product effect incomplete [Unknown]
